FAERS Safety Report 11639713 (Version 1)
Quarter: 2015Q4

REPORT INFORMATION
  Report Type: Spontaneous
  Country: US (occurrence: US)
  Receive Date: 20151019
  Receipt Date: 20151019
  Transmission Date: 20160304
  Serious: Yes (Other)
  Sender: FDA-Public Use
  Company Number: US-FRESENIUS KABI-FK201505058

PATIENT
  Age: 3 Year
  Sex: Male

DRUGS (10)
  1. VINCRISTINE (MANUFACTURER UNKNOWN) [Suspect]
     Active Substance: VINCRISTINE
     Indication: ACUTE MYELOID LEUKAEMIA
  2. PEG/L-ASPARAGINASE [Suspect]
     Active Substance: PEGASPARGASE
     Indication: ACUTE MYELOID LEUKAEMIA
  3. CYTARABINE (MANUFACTURER UNKNOWN) [Suspect]
     Active Substance: CYTARABINE
     Indication: B-CELL TYPE ACUTE LEUKAEMIA
     Route: 037
  4. HYDROCORTISONE. [Suspect]
     Active Substance: HYDROCORTISONE
     Indication: ACUTE MYELOID LEUKAEMIA
  5. CYTARABINE (MANUFACTURER UNKNOWN) [Suspect]
     Active Substance: CYTARABINE
     Indication: ACUTE MYELOID LEUKAEMIA
  6. VINCRISTINE (MANUFACTURER UNKNOWN) [Suspect]
     Active Substance: VINCRISTINE
     Indication: B-CELL TYPE ACUTE LEUKAEMIA
     Route: 065
  7. METHOTREXATE (MANUFACTURER UNKNOWN) [Suspect]
     Active Substance: METHOTREXATE
     Indication: ACUTE MYELOID LEUKAEMIA
  8. HYDROCORTISONE. [Suspect]
     Active Substance: HYDROCORTISONE
     Indication: B-CELL TYPE ACUTE LEUKAEMIA
     Route: 037
  9. METHOTREXATE (MANUFACTURER UNKNOWN) [Suspect]
     Active Substance: METHOTREXATE
     Indication: B-CELL TYPE ACUTE LEUKAEMIA
     Route: 037
  10. PEG/L-ASPARAGINASE [Suspect]
     Active Substance: PEGASPARGASE
     Indication: B-CELL TYPE ACUTE LEUKAEMIA

REACTIONS (1)
  - Trichosporon infection [Recovered/Resolved]
